FAERS Safety Report 13415765 (Version 1)
Quarter: 2017Q2

REPORT INFORMATION
  Report Type: Spontaneous
  Country: US (occurrence: US)
  Receive Date: 20170406
  Receipt Date: 20170406
  Transmission Date: 20170830
  Serious: No
  Sender: FDA-Public Use
  Company Number: US-009507513-1703USA014651

PATIENT
  Age: 58 Year
  Sex: Female

DRUGS (4)
  1. DIPROLENE [Suspect]
     Active Substance: BETAMETHASONE DIPROPIONATE
     Indication: DERMATOSIS
     Dosage: 00.5% LOTION (SECOND EPISODE)
     Route: 061
  2. PREDNISONE. [Concomitant]
     Active Substance: PREDNISONE
     Dosage: 60 MG, QD (60 MG/D TAPERING TO 10 MG/D OVER 2 WEEKS)
     Route: 048
  3. DIPROLENE [Suspect]
     Active Substance: BETAMETHASONE DIPROPIONATE
     Dosage: 00.5% LOTION TWICE A DAY
     Route: 061
  4. PREDNISONE. [Concomitant]
     Active Substance: PREDNISONE
     Dosage: 10 MG, QD (60 MG/D TAPERING TO 10 MG/D OVER 2 WEEKS)
     Route: 048

REACTIONS (1)
  - Drug ineffective [Unknown]
